FAERS Safety Report 6235498-X (Version None)
Quarter: 2009Q2

REPORT INFORMATION
  Report Type: 
  Country: None (occurrence: None)
  Receive Date: 20090618
  Receipt Date: 20080602
  Transmission Date: 20091009
  Serious: No
  Sender: FDA-Public Use
  Company Number: US-ASTRAZENECA-2008UW11111

PATIENT
  Sex: Female

DRUGS (1)
  1. RHINOCORT [Suspect]
     Indication: RHINITIS ALLERGIC
     Route: 045
     Dates: start: 20080528

REACTIONS (1)
  - SENSATION OF FOREIGN BODY [None]
